FAERS Safety Report 4269573-6 (Version None)
Quarter: 2004Q1

REPORT INFORMATION
  Report Type: 
  Country: None (occurrence: None)
  Receive Date: 20040112
  Receipt Date: 20031226
  Transmission Date: 20041129
  Serious: Yes (Other)
  Sender: FDA-Public Use
  Company Number: 200323099GDDC

PATIENT
  Age: 83 Year
  Sex: Female

DRUGS (10)
  1. INDAPAMIDE [Suspect]
     Indication: ESSENTIAL HYPERTENSION
     Dosage: 1.5 MG/DAY PO
     Route: 048
  2. LEVODOPA BENSERAZIDE HYDROCHLORIDE [Concomitant]
  3. QUININE SULPHATE [Concomitant]
  4. OXAZEPAM [Concomitant]
  5. ATENOLOL [Concomitant]
  6. OMERPAZOLE [Concomitant]
  7. DOMPERIDONE [Concomitant]
  8. CLOPIDOGREL [Concomitant]
  9. DIGOXIN [Concomitant]
  10. GYCERYL TRINITRATE [Concomitant]

REACTIONS (2)
  - FALL [None]
  - HYPONATRAEMIA [None]
